FAERS Safety Report 4397923-9 (Version None)
Quarter: 2004Q3

REPORT INFORMATION
  Report Type: 
  Country: None (occurrence: None)
  Receive Date: 20040714
  Receipt Date: 20040517
  Transmission Date: 20050211
  Serious: Yes (Other)
  Sender: FDA-Public Use
  Company Number: GB-MERCK-0405GBR00157

PATIENT
  Age: 41 Year
  Sex: Male
  Weight: 75 kg

DRUGS (4)
  1. OXYCODONE HYDROCHLORIDE [Concomitant]
     Indication: POST PROCEDURAL PAIN
     Route: 065
     Dates: start: 20040512, end: 20040512
  2. PROPOFOL [Concomitant]
     Indication: ANAESTHESIA
     Route: 065
     Dates: start: 20040512, end: 20040512
  3. REMIFENTANIL HYDROCHLORIDE [Concomitant]
     Indication: ANAESTHESIA
     Route: 065
     Dates: start: 20040512, end: 20040512
  4. VIOXX [Suspect]
     Indication: POST PROCEDURAL PAIN
     Route: 048
     Dates: start: 20040514, end: 20040514

REACTIONS (1)
  - POST PROCEDURAL HAEMORRHAGE [None]
